FAERS Safety Report 6118797-1 (Version None)
Quarter: 2009Q1

REPORT INFORMATION
  Report Type: 
  Country: None (occurrence: None)
  Receive Date: 20090316
  Receipt Date: 20090304
  Transmission Date: 20090719
  Serious: Yes (Hospitalization, Other)
  Sender: FDA-Public Use
  Company Number: PHHY2009GB08221

PATIENT
  Age: 37 Year
  Sex: Female

DRUGS (7)
  1. DICLOFENAC [Suspect]
     Indication: BACK PAIN
     Dosage: 500 MG, BID
     Dates: start: 20080901
  2. DEPAKOTE [Suspect]
     Indication: BIPOLAR DISORDER
     Dosage: 500 MG, BID
     Dates: start: 20040101
  3. EPILIM [Concomitant]
  4. OMEPRAZOLE [Concomitant]
     Dosage: 20 MG, QD
  5. PREDNISOLONE [Concomitant]
  6. TEMOCAPRIL HYDROCHLORIDE [Concomitant]
     Dosage: 3 DF, BID
  7. TRAMADOL HCL [Concomitant]
     Indication: BACK PAIN
     Dosage: 50 MG, QD

REACTIONS (7)
  - ABDOMINAL PAIN [None]
  - COLITIS ULCERATIVE [None]
  - CONDITION AGGRAVATED [None]
  - DIARRHOEA [None]
  - HAEMATOCHEZIA [None]
  - MANIA [None]
  - RECTAL HAEMORRHAGE [None]
